FAERS Safety Report 11150774 (Version 1)
Quarter: 2015Q2

REPORT INFORMATION
  Report Type: Spontaneous
  Country: AU (occurrence: AU)
  Receive Date: 20150601
  Receipt Date: 20150601
  Transmission Date: 20150821
  Serious: Yes (Other)
  Sender: FDA-Public Use
  Company Number: AU-ALKEM-001014

PATIENT
  Age: 37 Year
  Sex: Female

DRUGS (1)
  1. QUETIAPINE/QUETIAPINE FUMARATE [Suspect]
     Active Substance: QUETIAPINE FUMARATE
     Indication: BIPOLAR DISORDER
     Dosage: IR

REACTIONS (5)
  - Gestational hypertension [Unknown]
  - Weight increased [Unknown]
  - Premature delivery [None]
  - Caesarean section [None]
  - Exposure during pregnancy [Unknown]
